FAERS Safety Report 7243955-2 (Version None)
Quarter: 2011Q1

REPORT INFORMATION
  Report Type: 
  Country: None (occurrence: None)
  Receive Date: 20110125
  Receipt Date: 20110113
  Transmission Date: 20110831
  Serious: Yes (Other)
  Sender: FDA-Public Use
  Company Number: PHHY2011PL02873

PATIENT
  Age: 48 Year
  Sex: Female

DRUGS (4)
  1. IMATINIB [Suspect]
     Dosage: 400 MG, QD
     Dates: start: 20060801
  2. CYCLOSPORINE [Concomitant]
     Indication: PROPHYLAXIS
  3. IMATINIB [Suspect]
     Dosage: 300 MG, QD
  4. IMATINIB [Suspect]
     Dosage: 400 MG, QD,4 WEEKS

REACTIONS (9)
  - NEUTROPENIA [None]
  - GENE MUTATION IDENTIFICATION TEST POSITIVE [None]
  - GRAFT VERSUS HOST DISEASE [None]
  - NAUSEA [None]
  - DRUG RESISTANCE [None]
  - DECREASED APPETITE [None]
  - LIVER DISORDER [None]
  - DIARRHOEA [None]
  - GASTROINTESTINAL DISORDER [None]
